FAERS Safety Report 10633643 (Version 2)
Quarter: 2014Q4

REPORT INFORMATION
  Report Type: Spontaneous
  Country: US (occurrence: US)
  Receive Date: 20141205
  Receipt Date: 20141230
  Transmission Date: 20150529
  Serious: No
  Sender: FDA-Public Use
  Company Number: US-009507513-1411USA010328

PATIENT
  Sex: Female

DRUGS (1)
  1. DULERA [Suspect]
     Active Substance: FORMOTEROL FUMARATE DIHYDRATE\MOMETASONE FUROATE
     Indication: ASTHMA
     Dosage: UNK
     Dates: start: 2014

REACTIONS (11)
  - Lacrimation increased [Unknown]
  - Visual impairment [Unknown]
  - Product quality issue [Unknown]
  - Eye pruritus [Unknown]
  - Pyrexia [Unknown]
  - Eye irritation [Unknown]
  - Diarrhoea [Unknown]
  - Pollakiuria [Unknown]
  - Insomnia [Unknown]
  - Irritability [Unknown]
  - Pruritus [Unknown]

NARRATIVE: CASE EVENT DATE: 2014
